FAERS Safety Report 8083693-X (Version None)
Quarter: 2012Q1

REPORT INFORMATION
  Report Type: 
  Country: None (occurrence: None)
  Receive Date: 20120127
  Receipt Date: 20110127
  Transmission Date: 20120608
  Serious: No
  Sender: FDA-Public Use
  Company Number: US-ABBOTT-11P-163-0700087-00

PATIENT
  Sex: Female
  Weight: 66.6 kg

DRUGS (2)
  1. HUMIRA [Suspect]
     Dosage: X4 DOSES THEN REASSESS
     Route: 058
     Dates: start: 20100104
  2. HUMIRA [Suspect]
     Indication: CROHN'S DISEASE
     Route: 058
     Dates: start: 20090701, end: 20110104

REACTIONS (1)
  - CROHN'S DISEASE [None]
